FAERS Safety Report 9053341 (Version 2)
Quarter: 2013Q1

REPORT INFORMATION
  Report Type: Spontaneous
  Country: US (occurrence: US)
  Receive Date: 20130207
  Receipt Date: 20130301
  Transmission Date: 20140127
  Serious: Yes (Hospitalization)
  Sender: FDA-Public Use
  Company Number: US-ROCHE-1188700

PATIENT
  Age: 57 None
  Sex: Female
  Weight: 26.88 kg

DRUGS (3)
  1. PERJETA [Suspect]
     Indication: BREAST CANCER
     Route: 042
     Dates: start: 20120205, end: 20120205
  2. HERCEPTIN [Concomitant]
     Indication: BREAST CANCER
     Route: 042
     Dates: start: 20130205
  3. DOCETAXEL [Concomitant]
     Indication: BREAST CANCER
     Route: 042
     Dates: start: 20130205

REACTIONS (4)
  - Oxygen saturation decreased [Recovered/Resolved]
  - Erythema [Unknown]
  - Pleuritic pain [Unknown]
  - Pleural effusion [Unknown]
